FAERS Safety Report 9830254 (Version 7)
Quarter: 2014Q1

REPORT INFORMATION
  Report Type: Report from Study
  Country: KR (occurrence: KR)
  Receive Date: 20140120
  Receipt Date: 20140315
  Transmission Date: 20141002
  Serious: Yes (Hospitalization)
  Sender: FDA-Public Use
  Company Number: KR-MERCK-1401KOR006781

PATIENT
  Age: 74 Year
  Sex: Male
  Weight: 61.5 kg

DRUGS (4)
  1. VORINOSTAT [Suspect]
     Indication: MANTLE CELL LYMPHOMA
     Dosage: TOTAL DAILY DOSE: 200MG, STRENGTH: 200MG
     Route: 048
     Dates: start: 20131230, end: 20140108
  2. FLUDARABINE [Suspect]
     Indication: MANTLE CELL LYMPHOMA
     Dosage: TOTAL DAILY DOSE: 44MG
     Route: 042
     Dates: start: 20131230, end: 20140101
  3. MITOXANTRONE [Suspect]
     Indication: MANTLE CELL LYMPHOMA
     Dosage: TOTAL DAILY DOSE: 17MG
     Route: 042
     Dates: start: 20131230, end: 20131230
  4. DEXAMETHASONE [Suspect]
     Indication: MANTLE CELL LYMPHOMA
     Dosage: TOTAL DAILY DOSE: 20MG
     Route: 042
     Dates: start: 20131230, end: 20140103

REACTIONS (5)
  - Pancytopenia [Recovered/Resolved]
  - Pneumonia [Recovered/Resolved]
  - Pneumonia [Recovered/Resolved]
  - Neutropenia [Recovered/Resolved]
  - Neutropenia [Recovered/Resolved]
